FAERS Safety Report 5046468-1 (Version None)
Quarter: 2006Q3

REPORT INFORMATION
  Report Type: 
  Country: None (occurrence: None)
  Receive Date: 20060706
  Receipt Date: 20060706
  Transmission Date: 20061208
  Serious: Yes (Life-Threatening, Other)
  Sender: FDA-Public Use
  Company Number: None

PATIENT
  Age: 24 Year
  Sex: Male
  Weight: 72.1219 kg

DRUGS (1)
  1. CLARAVIS [Suspect]
     Indication: ACNE CYSTIC
     Dosage: 40MG   TWICE DAILY   PO
     Route: 048
     Dates: start: 20060303, end: 20060629

REACTIONS (15)
  - ABNORMAL BEHAVIOUR [None]
  - ALOPECIA [None]
  - ANGER [None]
  - ANOREXIA [None]
  - CRYING [None]
  - DEPRESSION [None]
  - EATING DISORDER [None]
  - FATIGUE [None]
  - HEADACHE [None]
  - INSOMNIA [None]
  - IRRITABILITY [None]
  - MEMORY IMPAIRMENT [None]
  - NAUSEA [None]
  - SOCIAL AVOIDANT BEHAVIOUR [None]
  - SUICIDAL IDEATION [None]
